FAERS Safety Report 11804572 (Version 1)
Quarter: 2015Q4

REPORT INFORMATION
  Report Type: Report from Study
  Country: US (occurrence: US)
  Receive Date: 20151204
  Receipt Date: 20151204
  Transmission Date: 20160305
  Serious: No
  Sender: FDA-Public Use
  Company Number: PHEH2014US026126

PATIENT
  Age: 10 Year
  Sex: Male

DRUGS (1)
  1. AFINITOR [Suspect]
     Active Substance: EVEROLIMUS
     Indication: BRAIN NEOPLASM BENIGN
     Dosage: QD
     Route: 048
     Dates: start: 20141228

REACTIONS (4)
  - Pulmonary congestion [Unknown]
  - Mood altered [Not Recovered/Not Resolved]
  - Cough [Unknown]
  - Personality change [Not Recovered/Not Resolved]

NARRATIVE: CASE EVENT DATE: 20141229
